FAERS Safety Report 9993162 (Version 1)
Quarter: 2014Q1

REPORT INFORMATION
  Report Type: Spontaneous
  Country: GB (occurrence: GB)
  Receive Date: 20140310
  Receipt Date: 20140310
  Transmission Date: 20141002
  Serious: Yes (Other)
  Sender: FDA-Public Use
  Company Number: GB-TEVA-464922ISR

PATIENT
  Age: 33 Year
  Sex: Male
  Weight: 88.8 kg

DRUGS (2)
  1. TRIMETHOPRIM [Suspect]
     Dates: start: 20140212
  2. METFORMIN [Concomitant]
     Indication: ILL-DEFINED DISORDER
     Dates: start: 20140211

REACTIONS (2)
  - Rash [Recovering/Resolving]
  - Dyspnoea [Recovering/Resolving]
